FAERS Safety Report 24752373 (Version 1)
Quarter: 2024Q4

REPORT INFORMATION
  Report Type: Spontaneous
  Country: US (occurrence: US)
  Receive Date: 20241219
  Receipt Date: 20241219
  Transmission Date: 20250114
  Serious: Yes (Life-Threatening, Hospitalization)
  Sender: Unknown Manufacturer
  Company Number: US-MELINTA THERAPEUTICS, LLC-US-MLNT-24-00582

PATIENT

DRUGS (2)
  1. ORBACTIV [Suspect]
     Active Substance: ORITAVANCIN
     Indication: Product used for unknown indication
     Dosage: UNK, SINGLE
     Route: 041
     Dates: start: 20241107, end: 20241107
  2. ORBACTIV [Suspect]
     Active Substance: ORITAVANCIN
     Dosage: UNK, SINGLE
     Route: 041
     Dates: start: 20241122, end: 20241122

REACTIONS (7)
  - Myocardial infarction [Unknown]
  - Blood pressure increased [Unknown]
  - Oxygen saturation decreased [Unknown]
  - Loss of consciousness [Unknown]
  - Chills [Unknown]
  - Blood pressure increased [Recovered/Resolved]
  - Multiple use of single-use product [Unknown]

NARRATIVE: CASE EVENT DATE: 20241107
